FAERS Safety Report 6383181-2 (Version None)
Quarter: 2009Q3

REPORT INFORMATION
  Report Type: 
  Country: None (occurrence: None)
  Receive Date: 20090929
  Receipt Date: 20090914
  Transmission Date: 20100115
  Serious: Yes (Hospitalization)
  Sender: FDA-Public Use
  Company Number: 2008AL008841

PATIENT
  Age: 54 Year
  Sex: Male
  Weight: 127.4608 kg

DRUGS (47)
  1. DIGOXIN [Suspect]
     Dosage: 0.25MG, DAILY, PO
     Route: 048
  2. ENALAPRIL MALEATE [Concomitant]
  3. ALBUTEROL [Concomitant]
  4. ALLOPURINOL [Concomitant]
  5. METFORMIN HYDROCHLORIDE [Concomitant]
  6. ASPIRIN [Concomitant]
  7. LASIX [Concomitant]
  8. COREG [Concomitant]
  9. LEVENIR [Concomitant]
  10. TYLENOL (CAPLET) [Concomitant]
  11. IMDUR [Concomitant]
  12. NITROGLYCERIN [Concomitant]
  13. SPIRONOLACTONE [Concomitant]
  14. PREDNISONE [Concomitant]
  15. LEVEMIR [Concomitant]
  16. SYMBICORT [Concomitant]
  17. CRESTOR [Concomitant]
  18. PROMETHAZINE [Concomitant]
  19. AVONEX [Concomitant]
  20. AVANDAMET [Concomitant]
  21. STARLIX [Concomitant]
  22. BIAXIN [Concomitant]
  23. PROAIR HFA [Concomitant]
  24. CLINDAMYCIN [Concomitant]
  25. AZITHROMYCIN [Concomitant]
  26. AMBIEN [Concomitant]
  27. LEVAQUIN [Concomitant]
  28. ADVAIR DISKUS 100/50 [Concomitant]
  29. JANUVIA [Concomitant]
  30. POTASSIUM CL [Concomitant]
  31. METOLAZONE [Concomitant]
  32. OMNICEF [Concomitant]
  33. CIPRO [Concomitant]
  34. TRAMADOL HCL [Concomitant]
  35. DIPHENHYDRAMINE HCL [Concomitant]
  36. LANTUS [Concomitant]
  37. APIDRA [Concomitant]
  38. GAIN-TUSS-DM [Concomitant]
  39. KETOCONAZOLE [Concomitant]
  40. VIAGRA [Concomitant]
  41. AUGMENTIN [Concomitant]
  42. NITROGLYCERIN [Concomitant]
  43. SIMVASTATIN [Concomitant]
  44. CITALOPRAM HYDROBROMIDE [Concomitant]
  45. OXYCODONE [Concomitant]
  46. PCN [Concomitant]
  47. AMOXICILLIN [Concomitant]

REACTIONS (15)
  - AMNESIA [None]
  - ASTHMA [None]
  - BLOOD GLUCOSE INCREASED [None]
  - CONGESTIVE CARDIOMYOPATHY [None]
  - COUGH [None]
  - DIABETIC NEUROPATHY [None]
  - DIVERTICULITIS [None]
  - DIZZINESS [None]
  - DRUG HYPERSENSITIVITY [None]
  - HYPOAESTHESIA [None]
  - MULTIPLE INJURIES [None]
  - NASAL CONGESTION [None]
  - OEDEMA PERIPHERAL [None]
  - SLEEP APNOEA SYNDROME [None]
  - TREATMENT NONCOMPLIANCE [None]
